FAERS Safety Report 11530204 (Version 2)
Quarter: 2015Q3

REPORT INFORMATION
  Report Type: Report from Study
  Country: AU (occurrence: AU)
  Receive Date: 20150921
  Receipt Date: 20150923
  Transmission Date: 20151125
  Serious: Yes (Hospitalization)
  Sender: FDA-Public Use
  Company Number: PHHO2015AU014285

PATIENT
  Age: 44 Year
  Sex: Male

DRUGS (3)
  1. PANITUMUMAB [Suspect]
     Active Substance: PANITUMUMAB
     Indication: COLORECTAL CANCER
     Dosage: 340 MG, UNK
     Route: 042
     Dates: start: 20141209, end: 20150818
  2. AFINITOR [Suspect]
     Active Substance: EVEROLIMUS
     Indication: COLORECTAL CANCER
     Dosage: 5 MG, UNK
     Route: 048
     Dates: start: 20141209, end: 20150818
  3. IRINOTECAN [Suspect]
     Active Substance: IRINOTECAN
     Indication: COLORECTAL CANCER
     Dosage: 286.5 MG, UNK
     Route: 042
     Dates: start: 20141209, end: 20150818

REACTIONS (1)
  - Injury [Unknown]

NARRATIVE: CASE EVENT DATE: 20150912
